FAERS Safety Report 24639768 (Version 4)
Quarter: 2025Q1

REPORT INFORMATION
  Report Type: Spontaneous
  Country: JP (occurrence: JP)
  Receive Date: 20241120
  Receipt Date: 20250304
  Transmission Date: 20250409
  Serious: Yes (Other)
  Sender: GLAXOSMITHKLINE
  Company Number: None

PATIENT
  Age: 37 Year
  Sex: Female

DRUGS (7)
  1. BENLYSTA [Suspect]
     Active Substance: BELIMUMAB
     Indication: Systemic lupus erythematosus
     Dosage: 200 MG, WE
     Dates: start: 20230119, end: 20240620
  2. QUETIAPINE [Concomitant]
     Active Substance: QUETIAPINE
     Indication: Depression
     Dosage: 25 MG, 1D
     Route: 048
     Dates: start: 20220929
  3. QUETIAPINE [Concomitant]
     Active Substance: QUETIAPINE
     Indication: Mental disorder due to a general medical condition
  4. Depas [Concomitant]
     Indication: Depression
     Dosage: 3 MG, TID
     Route: 048
     Dates: start: 20220220
  5. Depas [Concomitant]
     Indication: Mental disorder due to a general medical condition
  6. OLANZAPINE [Concomitant]
     Active Substance: OLANZAPINE
     Indication: Depression
     Dosage: 1.25 MG, 1D
     Route: 048
     Dates: start: 20230720, end: 20240620
  7. OLANZAPINE [Concomitant]
     Active Substance: OLANZAPINE
     Indication: Mental disorder due to a general medical condition

REACTIONS (4)
  - Suicidal ideation [Recovering/Resolving]
  - Endometriosis [Recovering/Resolving]
  - Affect lability [Recovering/Resolving]
  - Overdose [Unknown]

NARRATIVE: CASE EVENT DATE: 20240620
